FAERS Safety Report 9193094 (Version 1)
Quarter: 2013Q1

REPORT INFORMATION
  Report Type: Spontaneous
  Country: US (occurrence: US)
  Receive Date: 20130327
  Receipt Date: 20130327
  Transmission Date: 20140127
  Serious: Yes (Hospitalization, Other)
  Sender: FDA-Public Use
  Company Number: US-ASTELLAS-2013US003268

PATIENT
  Age: 75 Year
  Sex: Female
  Weight: 51 kg

DRUGS (1)
  1. TARCEVA [Suspect]
     Indication: LUNG NEOPLASM MALIGNANT
     Dosage: 150 MG, UID/QD
     Route: 048
     Dates: start: 201212, end: 20130303

REACTIONS (6)
  - Anaemia [Recovering/Resolving]
  - Dehydration [Recovering/Resolving]
  - Epistaxis [Recovering/Resolving]
  - Renal impairment [Unknown]
  - Renal failure [Recovering/Resolving]
  - Diarrhoea [Recovering/Resolving]
